FAERS Safety Report 8785299 (Version 2)
Quarter: 2012Q4

REPORT INFORMATION
  Report Type: Spontaneous
  Country: DE (occurrence: None)
  Receive Date: 20120905
  Receipt Date: 20120913
  Transmission Date: 20130627
  Serious: Yes (Life-Threatening, Hospitalization)
  Sender: FDA-Public Use
  Company Number: TPA2012A06140

PATIENT
  Age: 73 Year
  Sex: Female

DRUGS (6)
  1. ADENURIC [Suspect]
     Indication: GOUT
     Route: 048
     Dates: start: 20120801, end: 20120816
  2. ASPIRIN (ACETYLSALICYLIC ACID) [Concomitant]
  3. RASILEZ (ALISKIREN) [Concomitant]
  4. DOXAZOSIN [Concomitant]
  5. TORASEMID [Concomitant]
  6. DICLOFENAC [Concomitant]

REACTIONS (3)
  - Stevens-Johnson syndrome [None]
  - Anaphylactic shock [None]
  - Loss of consciousness [None]
